FAERS Safety Report 20732179 (Version 1)
Quarter: 2022Q2

REPORT INFORMATION
  Report Type: Spontaneous
  Country: US (occurrence: US)
  Receive Date: 20220420
  Receipt Date: 20220420
  Transmission Date: 20220721
  Serious: Yes (Other)
  Sender: FDA-Public Use
  Company Number: US-ALXN-A202204761

PATIENT
  Sex: Female

DRUGS (1)
  1. SOLIRIS [Suspect]
     Active Substance: ECULIZUMAB
     Indication: Myasthenia gravis
     Route: 065

REACTIONS (5)
  - Pulmonary embolism [Unknown]
  - Diplopia [Unknown]
  - Eyelid ptosis [Unknown]
  - Asthenia [Unknown]
  - Dyspnoea [Unknown]
